FAERS Safety Report 5837253-9 (Version None)
Quarter: 2008Q3

REPORT INFORMATION
  Report Type: 
  Country: None (occurrence: None)
  Receive Date: 20080807
  Receipt Date: 20080729
  Transmission Date: 20090109
  Serious: Yes (Hospitalization)
  Sender: FDA-Public Use
  Company Number: AR-ABBOTT-08P-007-0466872-01

PATIENT
  Sex: Male
  Weight: 74 kg

DRUGS (3)
  1. RITONAVIR SOFT GELATIN CAPSULES [Suspect]
     Indication: HIV INFECTION
     Route: 048
  2. TMC125 [Concomitant]
     Indication: HIV INFECTION
  3. TMC114 [Concomitant]
     Indication: HIV INFECTION

REACTIONS (1)
  - DEPRESSION [None]
